FAERS Safety Report 8187316-0 (Version None)
Quarter: 2012Q1

REPORT INFORMATION
  Report Type: 
  Country: None (occurrence: None)
  Receive Date: 20120302
  Receipt Date: 20120224
  Transmission Date: 20120608
  Serious: Yes (Hospitalization)
  Sender: FDA-Public Use
  Company Number: DAV-AE-MTX-12-13

PATIENT
  Age: 50 Year
  Sex: Female

DRUGS (9)
  1. VINCRISTINE [Concomitant]
  2. METHOTREXATE [Suspect]
     Indication: ACUTE LYMPHOCYTIC LEUKAEMIA
     Dosage: INTRATHECAL
     Route: 037
  3. GEMCITABINE [Concomitant]
  4. CYCLOPHOSPHAMIDE [Concomitant]
  5. ASPARAGINASE [Concomitant]
  6. ETOPOSIDE [Concomitant]
  7. MITOXANTRONE [Concomitant]
  8. PREDNISONE TAB [Concomitant]
  9. CYTARABINE [Concomitant]

REACTIONS (16)
  - RENAL FAILURE CHRONIC [None]
  - METASTASIS [None]
  - VOCAL CORD PARALYSIS [None]
  - TOXICITY TO VARIOUS AGENTS [None]
  - THROMBOCYTOPENIA [None]
  - RASH [None]
  - CONGESTIVE CARDIOMYOPATHY [None]
  - DEAFNESS [None]
  - ACUTE LYMPHOCYTIC LEUKAEMIA RECURRENT [None]
  - HYPERTENSION [None]
  - TREATMENT RELATED SECONDARY MALIGNANCY [None]
  - CARDIAC FAILURE CONGESTIVE [None]
  - METABOLIC SYNDROME [None]
  - DEPRESSION [None]
  - PERIPHERAL SENSORY NEUROPATHY [None]
  - BILE DUCT CANCER [None]
